FAERS Safety Report 8540648-6 (Version None)
Quarter: 2012Q3

REPORT INFORMATION
  Report Type: 
  Country: None (occurrence: None)
  Receive Date: 20120726
  Receipt Date: 20120717
  Transmission Date: 20120928
  Serious: Yes (Hospitalization, Other)
  Sender: FDA-Public Use
  Company Number: US-BRISTOL-MYERS SQUIBB COMPANY-16775371

PATIENT
  Sex: Male

DRUGS (7)
  1. SPIRONOLACTONE [Concomitant]
  2. METOPROLOL SUCCINATE [Concomitant]
  3. BUMEX [Concomitant]
  4. METFORMIN HCL [Suspect]
     Route: 065
  5. GLYBURIDE [Suspect]
  6. LANTUS [Suspect]
     Indication: TYPE 2 DIABETES MELLITUS
     Dosage: 35-50 UNITS DAILY PARENTERAL INJ, 100IU/ML 4-5YEARS
     Route: 058
  7. BYETTA [Suspect]

REACTIONS (3)
  - RENAL FAILURE [None]
  - LIMB INJURY [None]
  - BLOOD GLUCOSE INCREASED [None]
